FAERS Safety Report 15783237 (Version 1)
Quarter: 2019Q1

REPORT INFORMATION
  Report Type: Spontaneous
  Country: US (occurrence: US)
  Receive Date: 20190102
  Receipt Date: 20190102
  Transmission Date: 20190417
  Serious: No
  Sender: FDA-Public Use
  Company Number: US-SA-2019SA000013

PATIENT
  Sex: Female

DRUGS (2)
  1. XYZAL ALLERGY 24HR [Suspect]
     Active Substance: LEVOCETIRIZINE DIHYDROCHLORIDE
     Dosage: TAKEN 2 PILLS WITHIN FOUR DAYS
  2. XYZAL ALLERGY 24HR [Suspect]
     Active Substance: LEVOCETIRIZINE DIHYDROCHLORIDE
     Indication: RESPIRATORY FUME INHALATION DISORDER
     Dosage: 6 DF, 3 IN THE MORNING AND 3 AT NIGHT

REACTIONS (7)
  - Drug withdrawal syndrome [Unknown]
  - Weight increased [Unknown]
  - Tremor [Unknown]
  - Dizziness [Unknown]
  - Abdominal distension [Unknown]
  - Hypersensitivity [Unknown]
  - Insomnia [Unknown]
